FAERS Safety Report 7989790-9 (Version None)
Quarter: 2011Q4

REPORT INFORMATION
  Report Type: 
  Country: None (occurrence: None)
  Receive Date: 20111219
  Receipt Date: 20110328
  Transmission Date: 20120403
  Serious: No
  Sender: FDA-Public Use
  Company Number: US-ASTRAZENECA-2011SE17395

PATIENT
  Age: 58 Year
  Sex: Female
  Weight: 68 kg

DRUGS (9)
  1. DIGOXIN [Concomitant]
     Indication: ARRHYTHMIA
  2. CENTRUM [Concomitant]
     Indication: PROPHYLAXIS
  3. CRESTOR [Suspect]
     Route: 048
  4. NATAOLOL [Concomitant]
     Indication: TACHYCARDIA
  5. NATAOLOL [Concomitant]
     Indication: ARRHYTHMIA
  6. OMEPRAZOLE [Concomitant]
     Indication: GASTROOESOPHAGEAL REFLUX DISEASE
  7. DIGOXIN [Concomitant]
     Indication: TACHYCARDIA
  8. OSCAL [Concomitant]
     Indication: BONE DISORDER
  9. VITAMIN C [Concomitant]
     Indication: PROPHYLAXIS

REACTIONS (3)
  - ASTHENIA [None]
  - FATIGUE [None]
  - EPISTAXIS [None]
